FAERS Safety Report 12076928 (Version 1)
Quarter: 2016Q1

REPORT INFORMATION
  Report Type: Spontaneous
  Country: US (occurrence: US)
  Receive Date: 20160215
  Receipt Date: 20160215
  Transmission Date: 20160526
  Serious: No
  Sender: FDA-Public Use
  Company Number: US-BAYER-2016-023390

PATIENT
  Age: 75 Year
  Sex: Male
  Weight: 105.2 kg

DRUGS (1)
  1. MIRALAX [Suspect]
     Active Substance: POLYETHYLENE GLYCOL 3350
     Indication: COLONOSCOPY
     Dosage: 1 DF, QD
     Dates: start: 201601

REACTIONS (3)
  - Product use issue [None]
  - Product use issue [None]
  - Defaecation urgency [None]

NARRATIVE: CASE EVENT DATE: 201601
